FAERS Safety Report 5252740-2 (Version None)
Quarter: 2007Q1

REPORT INFORMATION
  Report Type: 
  Country: None (occurrence: None)
  Receive Date: 20070301
  Receipt Date: 20061120
  Transmission Date: 20070707
  Serious: No
  Sender: FDA-Public Use
  Company Number: US-GLAXOSMITHKLINE-A0628135A

PATIENT
  Age: 16 Year
  Sex: Male

DRUGS (2)
  1. LAMICTAL [Suspect]
     Indication: BIPOLAR DISORDER
     Dosage: 300MG PER DAY
     Route: 048
     Dates: start: 20061112
  2. CONCERTA [Concomitant]

REACTIONS (3)
  - GLOSSODYNIA [None]
  - RASH [None]
  - TONGUE DISORDER [None]
